FAERS Safety Report 6429378-4 (Version None)
Quarter: 2009Q4

REPORT INFORMATION
  Report Type: 
  Country: None (occurrence: None)
  Receive Date: 20091105
  Receipt Date: 20090511
  Transmission Date: 20100525
  Serious: No
  Sender: FDA-Public Use
  Company Number: US-ABBOTT-09P-163-0572747-00

PATIENT
  Sex: Male
  Weight: 80.358 kg

DRUGS (1)
  1. KALETRA [Suspect]
     Indication: HIV TEST POSITIVE
     Dates: start: 20000101

REACTIONS (5)
  - FEELING ABNORMAL [None]
  - FREQUENT BOWEL MOVEMENTS [None]
  - INFLUENZA [None]
  - MALAISE [None]
  - VOMITING [None]
